FAERS Safety Report 14494978 (Version 2)
Quarter: 2018Q1

REPORT INFORMATION
  Report Type: Spontaneous
  Country: US (occurrence: US)
  Receive Date: 20180206
  Receipt Date: 20180207
  Transmission Date: 20180509
  Serious: No
  Sender: FDA-Public Use
  Company Number: US-MATRIXX INITIATIVES, INC.-2041502

PATIENT
  Age: 90 Year
  Sex: Male
  Weight: 75 kg

DRUGS (6)
  1. AMLODIPINE AND ATORVASTATIN [Concomitant]
     Active Substance: AMLODIPINE BESYLATE\ATORVASTATIN CALCIUM
  2. VITAMIN D3 [Concomitant]
     Active Substance: CHOLECALCIFEROL
  3. ZICAM COLD REMEDY NASAL SPRAY [Concomitant]
     Active Substance: HOMEOPATHICS
     Route: 045
     Dates: start: 20171210, end: 20171224
  4. MULTIVITAMIN [Concomitant]
     Active Substance: VITAMINS
  5. ZICAM COLD REMEDY [Suspect]
     Active Substance: HOMEOPATHICS\ZINC ACETATE\ZINC GLUCONATE
     Indication: NASOPHARYNGITIS
     Route: 048
  6. BABY ASPIRIN [Concomitant]
     Active Substance: ASPIRIN

REACTIONS (1)
  - Anosmia [Not Recovered/Not Resolved]
